FAERS Safety Report 9102934 (Version 5)
Quarter: 2013Q3

REPORT INFORMATION
  Report Type: Report from Study
  Country: FR (occurrence: FR)
  Receive Date: 20130218
  Receipt Date: 20130919
  Transmission Date: 20140515
  Serious: Yes (Hospitalization, Other)
  Sender: FDA-Public Use
  Company Number: FR-MILLENNIUM PHARMACEUTICALS, INC.-2013-01217

PATIENT
  Sex: 0

DRUGS (8)
  1. VELCADE [Suspect]
     Indication: PLASMA CELL MYELOMA
     Dosage: 1.75 MG, UNK
     Route: 065
     Dates: start: 20120904, end: 20120911
  2. DEXAMETHASONE [Suspect]
     Indication: PLASMA CELL MYELOMA
     Dosage: 20 MG, UNK
     Route: 048
     Dates: start: 20120904, end: 20120915
  3. CYCLOPHOSPHAMIDE [Suspect]
     Indication: PLASMA CELL MYELOMA
     Dosage: 750 MG/M2, UNK
     Route: 042
     Dates: start: 20120904, end: 20120914
  4. AMLOR [Concomitant]
  5. BACTRIM [Concomitant]
  6. ARANESP [Concomitant]
  7. ATARAX                             /00058401/ [Concomitant]
  8. DIFFU K [Concomitant]

REACTIONS (3)
  - Bone marrow failure [Recovered/Resolved]
  - Neutropenia [Recovered/Resolved]
  - Lung disorder [Recovered/Resolved]
